FAERS Safety Report 4539621-4 (Version None)
Quarter: 2004Q4

REPORT INFORMATION
  Report Type: 
  Country: None (occurrence: None)
  Receive Date: 20041228
  Receipt Date: 20041222
  Transmission Date: 20050328
  Serious: Yes (Death, Hospitalization)
  Sender: FDA-Public Use
  Company Number: PHBS2004JP17292

PATIENT
  Age: 46 Year
  Sex: Male

DRUGS (1)
  1. CYCLOSPORINE [Suspect]
     Route: 065

REACTIONS (4)
  - DISEASE RECURRENCE [None]
  - GRAFT VERSUS HOST DISEASE [None]
  - MYELODYSPLASTIC SYNDROME [None]
  - PNEUMOMEDIASTINUM [None]
